FAERS Safety Report 5927825-5 (Version None)
Quarter: 2008Q4

REPORT INFORMATION
  Report Type: 
  Country: None (occurrence: None)
  Receive Date: 20081023
  Receipt Date: 20081014
  Transmission Date: 20090506
  Serious: Yes (Other)
  Sender: FDA-Public Use
  Company Number: ES-ROCHE-591896

PATIENT
  Age: 53 Year
  Sex: Female

DRUGS (1)
  1. BONIVA [Suspect]
     Indication: OSTEOPOROSIS
     Dosage: PATIENT RECEIVED THE LAST DOSE ON 2 SEPTEMBER 2008.
     Route: 048
     Dates: start: 20080402

REACTIONS (6)
  - CHEST PAIN [None]
  - DYSPEPSIA [None]
  - HEADACHE [None]
  - HYPOAESTHESIA FACIAL [None]
  - MALAISE [None]
  - NAUSEA [None]
